FAERS Safety Report 9793095 (Version 2)
Quarter: 2014Q2

REPORT INFORMATION
  Report Type: Spontaneous
  Country: NO (occurrence: NO)
  Receive Date: 20140102
  Receipt Date: 20140403
  Transmission Date: 20141212
  Serious: Yes (Hospitalization, Other)
  Sender: FDA-Public Use
  Company Number: NO-TEVA-452486ISR

PATIENT
  Age: 69 Year
  Sex: Female

DRUGS (15)
  1. SIMVASTATIN [Suspect]
     Indication: HYPERCHOLESTEROLAEMIA
     Route: 048
  2. AFINITOR [Interacting]
     Indication: BREAST CANCER
     Route: 048
     Dates: start: 20131008, end: 20131023
  3. PARAFIN EMULSJON NAF [Concomitant]
     Route: 048
  4. CRANBERRY [Concomitant]
     Route: 048
  5. VIVAL [Concomitant]
     Dosage: 1 TABLET IN THE MORNING
  6. AROMASIN [Concomitant]
     Dosage: DOUBLE DOSAGE WAS GIVEN IN A PERIODE (DRUG ADM ERROR)
  7. SPIRIX [Concomitant]
     Route: 055
  8. CENTYL MED KALIUMKLORID [Concomitant]
     Route: 048
     Dates: end: 201311
  9. ASCORBIC ACID (VIT C) [Concomitant]
     Route: 048
  10. OXYCONTIN [Concomitant]
     Dosage: 30 MG A DAY (NOT OTHERWISE SPESIFIED)
     Route: 048
  11. PARACET [Concomitant]
     Route: 048
  12. XGEVA [Concomitant]
     Route: 058
  13. IMOVANE [Concomitant]
  14. CALCIGRAN FORTE [Concomitant]
  15. TRIATEC [Concomitant]
     Route: 048

REACTIONS (10)
  - Rhabdomyolysis [Recovering/Resolving]
  - Drug interaction [Unknown]
  - Abdominal pain [Unknown]
  - Vomiting [Unknown]
  - Abdominal distension [Unknown]
  - Neutropenia [Unknown]
  - Leukopenia [Unknown]
  - Fatigue [Unknown]
  - Dyspnoea [Recovering/Resolving]
  - Pyrexia [Recovered/Resolved]
